FAERS Safety Report 10347891 (Version 2)
Quarter: 2014Q3

REPORT INFORMATION
  Report Type: Spontaneous
  Country: US (occurrence: None)
  Receive Date: 20140725
  Receipt Date: 20140807
  Transmission Date: 20150326
  Serious: Yes (Hospitalization)
  Sender: FDA-Public Use
  Company Number: UNT-2014-003695

PATIENT
  Age: 67 Year
  Sex: Male
  Weight: 90.7 kg

DRUGS (5)
  1. ALDACTONE [Suspect]
     Active Substance: SPIRONOLACTONE
     Indication: FLUID OVERLOAD
  2. REVODULIN (TREPROSTINIL SODIUM) INJECTION, 2.5MG/ML [Concomitant]
     Route: 041
     Dates: start: 20131005
  3. VITAMIN K (PHYTOMENADIONE) [Concomitant]
  4. LETAIRIS [Concomitant]
     Active Substance: AMBRISENTAN
  5. ADCIRCA [Concomitant]
     Active Substance: TADALAFIL

REACTIONS (3)
  - Hyperkalaemia [None]
  - Fluid overload [None]
  - Blood creatine increased [None]

NARRATIVE: CASE EVENT DATE: 2014
